FAERS Safety Report 20538510 (Version 1)
Quarter: 2022Q1

REPORT INFORMATION
  Report Type: Spontaneous
  Country: CO (occurrence: CO)
  Receive Date: 20220302
  Receipt Date: 20220302
  Transmission Date: 20220423
  Serious: Yes (Other)
  Sender: FDA-Public Use
  Company Number: CO-009507513-2202COL001414

PATIENT
  Sex: Male

DRUGS (5)
  1. MOLNUPIRAVIR [Suspect]
     Active Substance: MOLNUPIRAVIR
     Dosage: 200 MG IN THE MORNING AND 400 MG IN THE AFTERNOON
  2. MOLNUPIRAVIR [Suspect]
     Active Substance: MOLNUPIRAVIR
     Dosage: 400 MG EVERY 12 HOURS
  3. GINKGO [Concomitant]
     Active Substance: GINKGO
  4. 3 OMEGAS [Concomitant]
  5. VITAMINS [Concomitant]
     Active Substance: VITAMINS

REACTIONS (5)
  - Dependence on oxygen therapy [Unknown]
  - Tachycardia [Unknown]
  - Dehydration [Unknown]
  - Diarrhoea [Unknown]
  - Inappropriate schedule of product administration [Unknown]
